FAERS Safety Report 18598481 (Version 1)
Quarter: 2020Q4

REPORT INFORMATION
  Report Type: Spontaneous
  Country: FR (occurrence: FR)
  Receive Date: 20201210
  Receipt Date: 20201210
  Transmission Date: 20210114
  Serious: Yes (Hospitalization)
  Sender: FDA-Public Use
  Company Number: FR-ACCORD-210396

PATIENT
  Age: 80 Year
  Sex: Female
  Weight: 80 kg

DRUGS (2)
  1. CLARITHROMYCIN ALMUS [Interacting]
     Active Substance: CLARITHROMYCIN
     Indication: HELICOBACTER INFECTION
     Dosage: STRENGTH-500 MG
     Route: 048
     Dates: start: 20201112, end: 20201122
  2. ATORVASTATIN ACCORD [Suspect]
     Active Substance: ATORVASTATIN
     Indication: DYSLIPIDAEMIA
     Dosage: STRENGTH-40 MG
     Route: 048
     Dates: start: 20201101, end: 20201118

REACTIONS (3)
  - Cell death [Recovering/Resolving]
  - Drug interaction [Unknown]
  - Rhabdomyolysis [Recovering/Resolving]

NARRATIVE: CASE EVENT DATE: 20201118
